FAERS Safety Report 17201820 (Version 1)
Quarter: 2019Q4

REPORT INFORMATION
  Report Type: Spontaneous
  Country: US (occurrence: US)
  Receive Date: 20191226
  Receipt Date: 20191226
  Transmission Date: 20200122
  Serious: No
  Sender: FDA-Public Use
  Company Number: US-PFIZER INC-2019549440

PATIENT
  Age: 77 Year
  Sex: Female

DRUGS (6)
  1. BACITRACIN. [Suspect]
     Active Substance: BACITRACIN
     Dosage: UNK
  2. ALLEGRA [Suspect]
     Active Substance: FEXOFENADINE HYDROCHLORIDE
     Dosage: UNK
  3. NEOSPORIN [Suspect]
     Active Substance: BACITRACIN ZINC\NEOMYCIN SULFATE\POLYMYXIN B SULFATE
     Dosage: UNK
  4. SOTALOL. [Suspect]
     Active Substance: SOTALOL
     Dosage: UNK
  5. AUGMENTINE [AMOXICILLIN;CLAVULANIC ACID] [Suspect]
     Active Substance: AMOXICILLIN\CLAVULANIC ACID
     Dosage: UNK
  6. ZINK [ZINC] [Suspect]
     Active Substance: ZINC
     Dosage: UNK

REACTIONS (1)
  - Drug hypersensitivity [Unknown]
